FAERS Safety Report 18385620 (Version 1)
Quarter: 2020Q4

REPORT INFORMATION
  Report Type: Spontaneous
  Country: US (occurrence: US)
  Receive Date: 20201013
  Receipt Date: 20201013
  Transmission Date: 20210114
  Serious: Yes (Hospitalization)
  Sender: FDA-Public Use
  Company Number: None

PATIENT
  Sex: Male

DRUGS (2)
  1. CAPECITABINE 500MG [Suspect]
     Active Substance: CAPECITABINE
     Indication: PANCREATIC CARCINOMA
     Dosage: ?          OTHER ROUTE:ORAL ONLY MON THRU FRI?
     Route: 048
     Dates: start: 202009
  2. CAPECITABINE 150MG [Suspect]
     Active Substance: CAPECITABINE
     Indication: PANCREATIC CARCINOMA
     Dosage: ?          OTHER ROUTE:ORAL ONLY MON THRU FRI?
     Route: 048
     Dates: start: 202009

REACTIONS (1)
  - White blood cell count decreased [None]
